FAERS Safety Report 23093361 (Version 1)
Quarter: 2023Q4

REPORT INFORMATION
  Report Type: Spontaneous
  Country: FR (occurrence: FR)
  Receive Date: 20231022
  Receipt Date: 20231022
  Transmission Date: 20240110
  Serious: Yes (Life-Threatening, Hospitalization)
  Sender: FDA-Public Use
  Company Number: None

PATIENT
  Age: 18 Year
  Sex: Female
  Weight: 56 kg

DRUGS (1)
  1. ACETAMINOPHEN [Suspect]
     Active Substance: ACETAMINOPHEN
     Indication: Intentional overdose
     Dosage: 7.000G
     Route: 048
     Dates: start: 20230523, end: 20230523

REACTIONS (7)
  - Poisoning deliberate [Recovered/Resolved]
  - Hepatic cytolysis [Recovered/Resolved]
  - Nausea [Recovered/Resolved]
  - Prothrombin time shortened [Recovered/Resolved]
  - Coagulation factor V level decreased [Recovered/Resolved]
  - Headache [Recovered/Resolved]
  - Vomiting [Recovered/Resolved]

NARRATIVE: CASE EVENT DATE: 20230523
